FAERS Safety Report 7592910-1 (Version None)
Quarter: 2011Q3

REPORT INFORMATION
  Report Type: 
  Country: None (occurrence: None)
  Receive Date: 20110706
  Receipt Date: 20110628
  Transmission Date: 20111222
  Serious: Yes (Hospitalization, Other)
  Sender: FDA-Public Use
  Company Number: US-ROCHE-706932

PATIENT
  Sex: Male
  Weight: 81.6 kg

DRUGS (3)
  1. ACCUTANE [Suspect]
     Route: 065
     Dates: start: 20040227, end: 20040301
  2. AMNESTEEM [Suspect]
     Dosage: TAKE 3 CAPSULES DAILY
     Route: 065
     Dates: start: 20031222
  3. CLARAVIS [Suspect]
     Route: 065
     Dates: start: 20031119

REACTIONS (3)
  - GASTRITIS [None]
  - INFLAMMATORY BOWEL DISEASE [None]
  - COLITIS [None]
